FAERS Safety Report 11825563 (Version 1)
Quarter: 2015Q4

REPORT INFORMATION
  Report Type: Spontaneous
  Country: US (occurrence: US)
  Receive Date: 20151211
  Receipt Date: 20151211
  Transmission Date: 20160305
  Serious: No
  Sender: FDA-Public Use
  Company Number: US-JNJFOC-20150904359

PATIENT
  Age: 74 Year
  Sex: Male

DRUGS (5)
  1. PROSCAR [Concomitant]
     Active Substance: FINASTERIDE
  2. ALLOPURINOL. [Concomitant]
     Active Substance: ALLOPURINOL
  3. NEURONTIN [Concomitant]
     Active Substance: GABAPENTIN
  4. RELAFEN [Concomitant]
     Active Substance: NABUMETONE
  5. IMBRUVICA [Suspect]
     Active Substance: IBRUTINIB
     Indication: CHRONIC LYMPHOCYTIC LEUKAEMIA
     Route: 048
     Dates: start: 20150702

REACTIONS (6)
  - Dizziness [Unknown]
  - Renal pain [Unknown]
  - Stomatitis [Unknown]
  - Contusion [Unknown]
  - Platelet count decreased [Unknown]
  - Asthenia [Unknown]

NARRATIVE: CASE EVENT DATE: 201507
